FAERS Safety Report 7261042-4 (Version None)
Quarter: 2011Q1

REPORT INFORMATION
  Report Type: 
  Country: None (occurrence: None)
  Receive Date: 20110130
  Receipt Date: 20101123
  Transmission Date: 20110831
  Serious: No
  Sender: FDA-Public Use
  Company Number: US-ABBOTT-10P-163-0687580-00

PATIENT
  Sex: Female

DRUGS (2)
  1. HUMIRA [Suspect]
     Indication: HIDRADENITIS
     Dosage: TWO INJECTIONS ON THE 1ST DAY AND ONE 2 WEEKS AFTER
     Dates: start: 20101101, end: 20101101
  2. HUMIRA [Suspect]
     Dates: start: 20101101

REACTIONS (2)
  - PAIN [None]
  - GAIT DISTURBANCE [None]
